FAERS Safety Report 21301005 (Version 1)
Quarter: 2022Q3

REPORT INFORMATION
  Report Type: Spontaneous
  Country: DE (occurrence: DE)
  Receive Date: 20220907
  Receipt Date: 20220907
  Transmission Date: 20221026
  Serious: Yes (Other)
  Sender: FDA-Public Use
  Company Number: DE-002147023-NVSC2022DE188910

PATIENT
  Age: 38 Year
  Sex: Female

DRUGS (6)
  1. LETROZOLE [Suspect]
     Active Substance: LETROZOLE
     Indication: Palliative care
     Dosage: 2.5 MILLIGRAM, ONCE A DAY
     Route: 065
     Dates: start: 201503, end: 201606
  2. LETROZOLE [Suspect]
     Active Substance: LETROZOLE
     Indication: Breast cancer
     Dosage: 2.5 MILLIGRAM, ONCE A DAY
     Route: 065
     Dates: start: 201702, end: 201909
  3. ERIBULIN [Suspect]
     Active Substance: ERIBULIN
     Indication: Chemotherapy
     Dosage: 1.23 MILLIGRAM (1.23 MG, D1 +8, Q21D)
     Route: 065
     Dates: start: 201607, end: 201702
  4. ERIBULIN [Suspect]
     Active Substance: ERIBULIN
     Indication: Breast cancer
  5. PALBOCICLIB [Suspect]
     Active Substance: PALBOCICLIB
     Indication: Breast cancer
     Dosage: 125 MILLIGRAM (125 MG (D1-21, Q28D)
     Route: 065
     Dates: start: 201702, end: 201702
  6. ZOLEDRONIC ACID [Suspect]
     Active Substance: ZOLEDRONIC ACID
     Indication: Osteoporosis
     Dosage: UNK, Q6M
     Route: 065
     Dates: start: 201507

REACTIONS (4)
  - Metastatic neoplasm [Unknown]
  - Metastases to lymph nodes [Unknown]
  - Metastases to heart [Unknown]
  - Osteoporosis [Unknown]

NARRATIVE: CASE EVENT DATE: 20190201
